FAERS Safety Report 20533964 (Version 1)
Quarter: 2022Q1

REPORT INFORMATION
  Report Type: Spontaneous
  Country: CN (occurrence: CN)
  Receive Date: 20220301
  Receipt Date: 20220301
  Transmission Date: 20220423
  Serious: Yes (Life-Threatening, Hospitalization)
  Sender: FDA-Public Use
  Company Number: CN-BAYER-2022A027543

PATIENT
  Age: 89 Year
  Sex: Female
  Weight: 50 kg

DRUGS (1)
  1. RIVAROXABAN [Suspect]
     Active Substance: RIVAROXABAN
     Indication: Anticoagulant therapy
     Dosage: 10 MG, QD
     Route: 048
     Dates: start: 20220125, end: 20220206

REACTIONS (11)
  - Blood fibrinogen increased [Unknown]
  - Fibrin D dimer increased [Unknown]
  - Mouth haemorrhage [Recovering/Resolving]
  - Coagulation time prolonged [Recovering/Resolving]
  - Gastrointestinal haemorrhage [Recovering/Resolving]
  - Vessel puncture site haemorrhage [Unknown]
  - Melaena [Recovering/Resolving]
  - Prescribed underdose [Unknown]
  - Underdose [Unknown]
  - Inappropriate schedule of product administration [Unknown]
  - Product prescribing issue [Unknown]

NARRATIVE: CASE EVENT DATE: 20220125
